FAERS Safety Report 9922394 (Version 1)
Quarter: 2014Q1

REPORT INFORMATION
  Report Type: Spontaneous
  Country: TR (occurrence: None)
  Receive Date: 20140224
  Receipt Date: 20140224
  Transmission Date: 20141002
  Serious: Yes (Other)
  Sender: FDA-Public Use
  Company Number: None

PATIENT
  Age: 27 Year
  Sex: Male
  Weight: 74 kg

DRUGS (1)
  1. ROGAINE FOAM [Suspect]
     Indication: ALOPECIA
     Dosage: TWICE DAILY INTO HAIR HEAD SCALP
     Dates: start: 20131101, end: 20140115

REACTIONS (3)
  - Alopecia [None]
  - Condition aggravated [None]
  - Suicidal ideation [None]
